FAERS Safety Report 9517657 (Version 2)
Quarter: 2013Q3

REPORT INFORMATION
  Report Type: Spontaneous
  Country: US (occurrence: US)
  Receive Date: 20130912
  Receipt Date: 20130924
  Transmission Date: 20140515
  Serious: Yes (Hospitalization)
  Sender: FDA-Public Use
  Company Number: US-BIOGENIDEC-2013BI085580

PATIENT
  Sex: Female

DRUGS (1)
  1. AVONEX [Suspect]
     Indication: MULTIPLE SCLEROSIS
     Route: 030
     Dates: start: 201210

REACTIONS (5)
  - Uterine leiomyoma [Recovered/Resolved]
  - Menstruation irregular [Recovered/Resolved]
  - Bladder disorder [Unknown]
  - Musculoskeletal stiffness [Unknown]
  - Pain [Unknown]
